FAERS Safety Report 6697772-2 (Version None)
Quarter: 2010Q2

REPORT INFORMATION
  Report Type: 
  Country: None (occurrence: None)
  Receive Date: 20100423
  Receipt Date: 20100407
  Transmission Date: 20101027
  Serious: Yes (Hospitalization)
  Sender: FDA-Public Use
  Company Number: DSA_42988_2010

PATIENT
  Age: 28 Year
  Sex: Female

DRUGS (3)
  1. DILTIAZEM HCL [Suspect]
     Indication: POISONING DELIBERATE
     Dosage: (1.8 G 1X ORAL)
     Route: 048
  2. METOPROLOL (METOPROLOL) [Suspect]
     Indication: POISONING DELIBERATE
     Dosage: (2 G 1X ORAL)
     Route: 048
  3. CILAZAPRIL (CILAZAPRIL) [Suspect]
     Indication: POISONING DELIBERATE
     Dosage: (50 MG 1X ORAL)
     Route: 048

REACTIONS (14)
  - ACIDOSIS [None]
  - CARDIOGENIC SHOCK [None]
  - HAEMODYNAMIC INSTABILITY [None]
  - HYPERGLYCAEMIA [None]
  - HYPERKALAEMIA [None]
  - HYPOTENSION [None]
  - LEFT VENTRICULAR DYSFUNCTION [None]
  - LOSS OF CONSCIOUSNESS [None]
  - NEUROLOGICAL DECOMPENSATION [None]
  - OBSTRUCTIVE AIRWAYS DISORDER [None]
  - POISONING DELIBERATE [None]
  - PULMONARY EMBOLISM [None]
  - RESPIRATION ABNORMAL [None]
  - SINUS BRADYCARDIA [None]
